FAERS Safety Report 18348878 (Version 1)
Quarter: 2020Q4

REPORT INFORMATION
  Report Type: Spontaneous
  Country: US (occurrence: US)
  Receive Date: 20201005
  Receipt Date: 20201005
  Transmission Date: 20210114
  Serious: Yes (Hospitalization)
  Sender: FDA-Public Use
  Company Number: None

PATIENT
  Sex: Female

DRUGS (23)
  1. BENLYSTA [Suspect]
     Active Substance: BELIMUMAB
     Indication: SYSTEMIC LUPUS ERYTHEMATOSUS
     Dosage: 1 PEN QWK SQ
     Route: 058
     Dates: start: 20190315
  2. PROPRANOLOL [Concomitant]
     Active Substance: PROPRANOLOL HYDROCHLORIDE
  3. HYDROXYCHLOR [Concomitant]
     Active Substance: HYDROXYCHLOROQUINE
  4. PREDNISONE. [Concomitant]
     Active Substance: PREDNISONE
  5. PREGABALIN. [Concomitant]
     Active Substance: PREGABALIN
  6. FLUCONAZOLE. [Concomitant]
     Active Substance: FLUCONAZOLE
  7. MOMETASONE [Concomitant]
     Active Substance: MOMETASONE
  8. OXCARBAZEPIN [Concomitant]
     Active Substance: OXCARBAZEPINE
  9. FOLIC ACID. [Concomitant]
     Active Substance: FOLIC ACID
  10. METHOCARBAM [Concomitant]
     Active Substance: METHOCARBAMOL
  11. BUT/APAP/CAF [Concomitant]
  12. GABAPENTIN. [Concomitant]
     Active Substance: GABAPENTIN
  13. PROMETHAZINE [Concomitant]
     Active Substance: PROMETHAZINE HYDROCHLORIDE
  14. CLINDAMYCIN. [Concomitant]
     Active Substance: CLINDAMYCIN
  15. DULOXETINE. [Concomitant]
     Active Substance: DULOXETINE
  16. METHOTREXATE. [Concomitant]
     Active Substance: METHOTREXATE
  17. PRAZOSIN HCL [Concomitant]
     Active Substance: PRAZOSIN HYDROCHLORIDE
  18. SPIRONOLACT [Concomitant]
     Active Substance: SPIRONOLACTONE
  19. ALLOPURINOL. [Concomitant]
     Active Substance: ALLOPURINOL
  20. MUPIROCIN. [Concomitant]
     Active Substance: MUPIROCIN
  21. TAMSULOSIN [Concomitant]
     Active Substance: TAMSULOSIN
  22. HYDROXYZ HCL [Concomitant]
     Active Substance: HYDROXYZINE HYDROCHLORIDE
  23. TACROLIMUS. [Concomitant]
     Active Substance: TACROLIMUS

REACTIONS (4)
  - Seizure [None]
  - Condition aggravated [None]
  - Pain [None]
  - Therapy interrupted [None]
